FAERS Safety Report 9712379 (Version 1)
Quarter: 2013Q4

REPORT INFORMATION
  Report Type: Spontaneous
  Country: US (occurrence: US)
  Receive Date: 20131126
  Receipt Date: 20131126
  Transmission Date: 20140711
  Serious: No
  Sender: FDA-Public Use
  Company Number: US-BRISTOL-MYERS SQUIBB COMPANY-19178599

PATIENT
  Age: 58 Year
  Sex: Female
  Weight: 97.96 kg

DRUGS (4)
  1. BYDUREON 2MG SUSPENSION [Suspect]
     Indication: TYPE 2 DIABETES MELLITUS
     Dosage: NO OF INJECTIONS:12
     Route: 058
     Dates: start: 20130521
  2. LANTUS [Concomitant]
  3. JANUVIA [Concomitant]
  4. GLYCOMET [Concomitant]
     Dosage: 1DF:5-500 2 BID

REACTIONS (4)
  - Injection site swelling [Recovering/Resolving]
  - Injection site discolouration [Recovering/Resolving]
  - Injection site pruritus [Unknown]
  - Weight decreased [Unknown]
